FAERS Safety Report 4455848-4 (Version None)
Quarter: 2004Q3

REPORT INFORMATION
  Report Type: 
  Country: None (occurrence: None)
  Receive Date: 20040922
  Receipt Date: 20040722
  Transmission Date: 20050211
  Serious: Yes (Other)
  Sender: FDA-Public Use
  Company Number: PR-ROCHE-374977

PATIENT
  Age: 63 Year
  Sex: Female
  Weight: 65.3 kg

DRUGS (6)
  1. PEG-INTERFERON ALFA 2A (RO 25-8310) [Suspect]
     Dosage: GIVEN AT BED TIME
     Route: 058
     Dates: start: 20030908, end: 20040614
  2. BLINDED THYMOSIN ALFA 1 [Suspect]
     Dosage: TAKEN IN THE MORNING.
     Route: 050
     Dates: start: 20030909, end: 20040619
  3. XALATAN [Concomitant]
     Route: 047
     Dates: start: 20000615
  4. PILOCARPINE HCL [Concomitant]
     Route: 047
     Dates: start: 19860615
  5. ALPHAGAN [Concomitant]
     Route: 047
     Dates: start: 20010615
  6. LEVOBUNOLOL HCL [Concomitant]
     Route: 047
     Dates: start: 19860615

REACTIONS (1)
  - RETINAL TEAR [None]
